FAERS Safety Report 14830809 (Version 2)
Quarter: 2018Q3

REPORT INFORMATION
  Report Type: Spontaneous
  Country: US (occurrence: US)
  Receive Date: 20180430
  Receipt Date: 20180903
  Transmission Date: 20181010
  Serious: No
  Sender: FDA-Public Use
  Company Number: US-SA-2018SA108329

PATIENT
  Sex: Female

DRUGS (2)
  1. ALIROCUMAB PREFILLED PEN [Suspect]
     Active Substance: ALIROCUMAB
     Indication: HYPERLIPIDAEMIA
     Dosage: UNK UNK, QOW
     Route: 058
     Dates: start: 20171226
  2. PRALUENT [Suspect]
     Active Substance: ALIROCUMAB
     Indication: HYPERLIPIDAEMIA
     Dosage: 75 MG,QOW
     Route: 058
     Dates: start: 20171226

REACTIONS (4)
  - Influenza like illness [Unknown]
  - Muscle spasms [Unknown]
  - Weight increased [Unknown]
  - Myalgia [Unknown]

NARRATIVE: CASE EVENT DATE: 201808
